FAERS Safety Report 5813432-1 (Version None)
Quarter: 2008Q3

REPORT INFORMATION
  Report Type: 
  Country: None (occurrence: None)
  Receive Date: 20080714
  Receipt Date: 20080702
  Transmission Date: 20090109
  Serious: No
  Sender: FDA-Public Use
  Company Number: 20085340

PATIENT
  Sex: Female

DRUGS (5)
  1. LIORESAL [Suspect]
     Indication: MUSCLE SPASTICITY
     Dosage: MCG, DAILY, INTRATHECAL
     Route: 037
  2. PRIALT [Concomitant]
  3. DILAUDID [Concomitant]
  4. BUPIVACIAINE [Concomitant]
  5. CLONIDINE [Concomitant]

REACTIONS (7)
  - BURNS THIRD DEGREE [None]
  - GAIT DISTURBANCE [None]
  - HYPOAESTHESIA [None]
  - MENTAL STATUS CHANGES [None]
  - MUSCULAR WEAKNESS [None]
  - OEDEMA PERIPHERAL [None]
  - WRONG TECHNIQUE IN DRUG USAGE PROCESS [None]
